FAERS Safety Report 19986790 (Version 1)
Quarter: 2021Q4

REPORT INFORMATION
  Report Type: Spontaneous
  Country: US (occurrence: US)
  Receive Date: 20211022
  Receipt Date: 20211022
  Transmission Date: 20220303
  Serious: Yes (Other)
  Sender: FDA-Public Use
  Company Number: US-GLAXOSMITHKLINE-US2021GSK219714

PATIENT
  Sex: Female

DRUGS (4)
  1. ZANTAC [Suspect]
     Active Substance: RANITIDINE HYDROCHLORIDE
     Dosage: 300MG OR MORE A WEEK|BOTH
     Route: 065
     Dates: start: 201403, end: 202002
  2. ZANTAC [Suspect]
     Active Substance: RANITIDINE HYDROCHLORIDE
     Dosage: 300MG OR MORE A WEEK|BOTH
     Route: 065
     Dates: start: 201403, end: 202002
  3. ZANTAC [Suspect]
     Active Substance: RANITIDINE HYDROCHLORIDE
     Dosage: 300MG OR MORE A WEEK|BOTH
     Route: 065
     Dates: start: 201403, end: 202002
  4. RANITIDINE [Suspect]
     Active Substance: RANITIDINE
     Dosage: 300MG OR MORE A WEEK|BOTH
     Route: 065
     Dates: start: 201403, end: 202002

REACTIONS (2)
  - Bladder cancer [Unknown]
  - Gastric cancer [Unknown]
